FAERS Safety Report 20631376 (Version 2)
Quarter: 2025Q1

REPORT INFORMATION
  Report Type: Spontaneous
  Country: CA (occurrence: CA)
  Receive Date: 20220324
  Receipt Date: 20250214
  Transmission Date: 20250409
  Serious: Yes (Hospitalization)
  Sender: ROCHE
  Company Number: CA-ROCHE-3056420

PATIENT
  Age: 71 Year
  Sex: Female

DRUGS (16)
  1. RITUXIMAB [Suspect]
     Active Substance: RITUXIMAB
     Indication: Rheumatoid arthritis
     Route: 042
  2. RITUXIMAB [Suspect]
     Active Substance: RITUXIMAB
     Route: 042
  3. BILBERRY [Concomitant]
     Active Substance: BILBERRY
  4. CALCIUM [Concomitant]
     Active Substance: CALCIUM
  5. ENALAPRIL [Concomitant]
     Active Substance: ENALAPRIL
  6. GABAPENTIN [Concomitant]
     Active Substance: GABAPENTIN
  7. GLUCOSAMINE [Concomitant]
     Active Substance: GLUCOSAMINE
  8. IRON [Concomitant]
     Active Substance: IRON
  9. KRILL OIL [Concomitant]
     Active Substance: DIETARY SUPPLEMENT\KRILL OIL
  10. ORENCIA [Concomitant]
     Active Substance: ABATACEPT
     Route: 042
  11. PRAMIPEXOLE [Concomitant]
     Active Substance: PRAMIPEXOLE
  12. PREDNISONE [Concomitant]
     Active Substance: PREDNISONE
  13. RISEDRONATE SODIUM [Concomitant]
     Active Substance: RISEDRONATE SODIUM
  14. UBIQUINOL [Concomitant]
     Active Substance: UBIQUINOL
  15. VITAMIN D3 [Concomitant]
     Active Substance: CHOLECALCIFEROL
  16. ZEAXANTHIN [Concomitant]
     Active Substance: ZEAXANTHIN

REACTIONS (8)
  - Arthritis infective [Recovering/Resolving]
  - Arthropathy [Recovering/Resolving]
  - Confusional state [Recovering/Resolving]
  - Diarrhoea [Recovering/Resolving]
  - Impaired healing [Recovering/Resolving]
  - Joint swelling [Recovering/Resolving]
  - Limb injury [Recovering/Resolving]
  - Nausea [Recovering/Resolving]
